FAERS Safety Report 6207831-6 (Version None)
Quarter: 2009Q2

REPORT INFORMATION
  Report Type: 
  Country: None (occurrence: None)
  Receive Date: 20090522
  Receipt Date: 20090511
  Transmission Date: 20091009
  Serious: Yes (Other)
  Sender: FDA-Public Use
  Company Number: DSM-2009-00662

PATIENT
  Age: 77 Year
  Sex: Female
  Weight: 71 kg

DRUGS (2)
  1. SEVIKAR (OLMESARTAN MEDOXOMIL/AMLODIPINE BESILATE) (TABLET) [Suspect]
     Indication: HYPERTENSION
     Dosage: 40MG/5MG,ORAL
     Route: 048
     Dates: start: 20090417, end: 20090426
  2. ALPRAZOLAM [Concomitant]

REACTIONS (5)
  - BACK PAIN [None]
  - BREAST DISCOMFORT [None]
  - OEDEMA PERIPHERAL [None]
  - POLYURIA [None]
  - PRURITUS GENERALISED [None]
